FAERS Safety Report 18257082 (Version 1)
Quarter: 2020Q3

REPORT INFORMATION
  Report Type: Spontaneous
  Country: FR (occurrence: FR)
  Receive Date: 20200911
  Receipt Date: 20200911
  Transmission Date: 20201103
  Serious: Yes (Hospitalization)
  Sender: FDA-Public Use
  Company Number: FR-MYLANLABS-2020M1077020

PATIENT
  Age: 57 Year
  Sex: Male
  Weight: 114 kg

DRUGS (5)
  1. PREDNISONE. [Suspect]
     Active Substance: PREDNISONE
     Dosage: 60 MILLIGRAM, QD
     Route: 048
     Dates: start: 20200630, end: 20200730
  2. PREDNISONE. [Suspect]
     Active Substance: PREDNISONE
     Dosage: 45 MILLIGRAM, QD
     Route: 048
     Dates: start: 20200731
  3. RITUXIMAB. [Suspect]
     Active Substance: RITUXIMAB
     Indication: VASCULITIS
     Dosage: 750 MILLIGRAM, QW
     Route: 041
     Dates: start: 20200529, end: 20200619
  4. GALVUS [Suspect]
     Active Substance: VILDAGLIPTIN
     Indication: DIABETES MELLITUS
     Dosage: 50 MILLIGRAM, QD
     Route: 048
     Dates: start: 202006
  5. PREDNISONE. [Suspect]
     Active Substance: PREDNISONE
     Indication: VASCULITIS
     Dosage: 80 MILLIGRAM, QD
     Route: 048
     Dates: start: 20200529, end: 20200629

REACTIONS (2)
  - Jaundice [Not Recovered/Not Resolved]
  - Hepatitis [Not Recovered/Not Resolved]

NARRATIVE: CASE EVENT DATE: 20200806
